FAERS Safety Report 5563703-1 (Version None)
Quarter: 2007Q4

REPORT INFORMATION
  Report Type: 
  Country: None (occurrence: None)
  Receive Date: 20071214
  Receipt Date: 20071214
  Transmission Date: 20080405
  Serious: Yes (Other)
  Sender: FDA-Public Use
  Company Number: None

PATIENT
  Sex: Female
  Weight: 46.7205 kg

DRUGS (1)
  1. SICOR-MEDROXYPROGESTERONE ACETATE 150MG [Suspect]
     Indication: CONTRACEPTION
     Dosage: 150 MG. Q12WK IM
     Route: 030
     Dates: start: 20070829

REACTIONS (2)
  - DRUG EXPOSURE DURING PREGNANCY [None]
  - PREGNANCY TEST URINE POSITIVE [None]
